FAERS Safety Report 8575902-5 (Version None)
Quarter: 2012Q3

REPORT INFORMATION
  Report Type: 
  Country: None (occurrence: None)
  Receive Date: 20120807
  Receipt Date: 20120806
  Transmission Date: 20120928
  Serious: No
  Sender: FDA-Public Use
  Company Number: US-TEVA-352193USA

PATIENT
  Sex: Female

DRUGS (12)
  1. COMBIVENT [Concomitant]
     Dosage: PRN
  2. EXEDRIN [Concomitant]
     Dosage: 1-2 TABLETS
     Route: 048
  3. CALCIUM PLUS VITAMIN D [Concomitant]
     Route: 048
  4. COPAXONE [Suspect]
     Indication: MULTIPLE SCLEROSIS
     Dosage: 20 MICROGRAM DAILY;
     Route: 058
     Dates: start: 20110625
  5. BACLOFEN [Concomitant]
     Dosage: 30 MILLIGRAM DAILY;
     Route: 048
  6. NAPROXEN SODIUM [Concomitant]
     Dosage: 440 MICROGRAM DAILY;
     Route: 048
  7. NEURONTIN [Concomitant]
     Route: 048
  8. LEVOTHYROXINE SODIUM [Interacting]
     Indication: HYPOTHYROIDISM
     Dosage: 150 MICROGRAM DAILY;
     Route: 048
  9. EFFEXOR [Concomitant]
     Indication: DEPRESSION
     Dosage: 150 MILLIGRAM DAILY;
     Route: 048
  10. BENZONATATE [Concomitant]
     Dosage: 300 MILLIGRAM DAILY; PRN
     Route: 048
  11. FISH OIL [Concomitant]
     Route: 048
  12. TRAMADOL HCL [Concomitant]
     Dosage: 200 MILLIGRAM DAILY; PRN
     Route: 048

REACTIONS (1)
  - URTICARIA [None]
